FAERS Safety Report 16849296 (Version 1)
Quarter: 2019Q3

REPORT INFORMATION
  Report Type: Spontaneous
  Country: US (occurrence: US)
  Receive Date: 20190802
  Receipt Date: 20190802
  Transmission Date: 20191005
  Serious: Yes (Hospitalization)
  Sender: FDA-Public Use
  Company Number: None

PATIENT
  Age: 50 Year
  Sex: Female

DRUGS (20)
  1. HYDROCO/APAP [Concomitant]
     Active Substance: ACETAMINOPHEN\HYDROCODONE
  2. LEVOTHYROXIN [Concomitant]
     Active Substance: LEVOTHYROXINE
  3. MELOXICAM. [Concomitant]
     Active Substance: MELOXICAM
  4. ONDANSETRON [Concomitant]
     Active Substance: ONDANSETRON
  5. PROGESTERONE. [Concomitant]
     Active Substance: PROGESTERONE
  6. CLONAZEPAM. [Concomitant]
     Active Substance: CLONAZEPAM
  7. MIRTAZAPINE. [Concomitant]
     Active Substance: MIRTAZAPINE
  8. ALPRAZOLAM. [Concomitant]
     Active Substance: ALPRAZOLAM
  9. ESZOPICLONE. [Concomitant]
     Active Substance: ESZOPICLONE
  10. REXULTI [Concomitant]
     Active Substance: BREXPIPRAZOLE
  11. ESTRADIOL. [Concomitant]
     Active Substance: ESTRADIOL
  12. FLUOXETINE [Concomitant]
     Active Substance: FLUOXETINE HYDROCHLORIDE
  13. IBUPROFEN. [Concomitant]
     Active Substance: IBUPROFEN
  14. ZOLMITRIPATAN [Concomitant]
  15. HYDROXYZ PAM [Concomitant]
     Active Substance: HYDROXYZINE PAMOATE
  16. LITHIUM. [Concomitant]
     Active Substance: LITHIUM
  17. OMNITROPE [Suspect]
     Active Substance: SOMATROPIN
     Indication: HYPOPITUITARISM
     Route: 058
     Dates: start: 20180501
  18. ABILIFY [Concomitant]
     Active Substance: ARIPIPRAZOLE
  19. ADDERALL [Concomitant]
     Active Substance: AMPHETAMINE ASPARTATE\AMPHETAMINE SULFATE\DEXTROAMPHETAMINE SACCHARATE\DEXTROAMPHETAMINE SULFATE
  20. VIIBRYD [Concomitant]
     Active Substance: VILAZODONE HYDROCHLORIDE

REACTIONS (2)
  - Product dose omission [None]
  - Hysterectomy [None]

NARRATIVE: CASE EVENT DATE: 20190801
